FAERS Safety Report 19399682 (Version 1)
Quarter: 2021Q2

REPORT INFORMATION
  Report Type: Report from Study
  Country: DE (occurrence: FR)
  Receive Date: 20210610
  Receipt Date: 20210610
  Transmission Date: 20210717
  Serious: Yes (Hospitalization)
  Sender: FDA-Public Use
  Company Number: FR-TEVA-2021-FR-1920657

PATIENT
  Age: 32 Year
  Sex: Female
  Weight: 120 kg

DRUGS (3)
  1. ATRA [Suspect]
     Active Substance: TRETINOIN
     Indication: ACUTE PROMYELOCYTIC LEUKAEMIA
     Dosage: DATE OF LAST ADMINISTRATION BEFORE ONSET OF SAE: 21?MAR?2021
     Route: 048
     Dates: start: 20210120, end: 20210321
  2. IDARUBICIN [Suspect]
     Active Substance: IDARUBICIN
     Indication: ACUTE PROMYELOCYTIC LEUKAEMIA
     Dosage: DATE OF LAST ADMINISTRATION BEFORE ONSET OF SAE: 20?JAN?2021
     Route: 042
     Dates: start: 20210118, end: 20210120
  3. TRISENOX [Suspect]
     Active Substance: ARSENIC TRIOXIDE
     Indication: ACUTE PROMYELOCYTIC LEUKAEMIA
     Dosage: DATE OF LAST ADMINISTRATION BEFORE ONSET OF SAE: 18?MAY?2021
     Route: 042
     Dates: start: 20210122, end: 20210518

REACTIONS (1)
  - Intracranial pressure increased [Not Recovered/Not Resolved]

NARRATIVE: CASE EVENT DATE: 20210519
